FAERS Safety Report 6502724-9 (Version None)
Quarter: 2009Q4

REPORT INFORMATION
  Report Type: 
  Country: None (occurrence: None)
  Receive Date: 20091217
  Receipt Date: 20091209
  Transmission Date: 20100525
  Serious: Yes (Other)
  Sender: FDA-Public Use
  Company Number: US-JNJFOC-20091203673

PATIENT
  Sex: Female
  Weight: 77.11 kg

DRUGS (16)
  1. DURAGESIC-100 [Suspect]
     Indication: BACK PAIN
     Route: 062
  2. WARFARIN SODIUM [Suspect]
     Indication: CARDIAC DISORDER
     Route: 048
  3. EXTRA STRENGTH TYLENOL [Concomitant]
     Indication: PAIN
     Route: 048
  4. TRAMADOL HCL [Concomitant]
     Indication: PAIN
     Route: 048
  5. DIGOXIN [Concomitant]
     Indication: CARDIAC DISORDER
     Route: 048
  6. OSCAL 500-D [Concomitant]
     Indication: OSTEOPOROSIS
     Route: 048
  7. ASPIRIN [Concomitant]
     Indication: CARDIAC DISORDER
     Route: 048
  8. FUROSEMIDE [Concomitant]
     Indication: DIURETIC THERAPY
     Route: 048
  9. POTASSIUM [Concomitant]
     Indication: HYPOKALAEMIA
     Route: 048
  10. PREVACID [Concomitant]
     Indication: GASTRIC DISORDER
     Route: 048
  11. LESCOL XL [Concomitant]
     Indication: DRUG USE FOR UNKNOWN INDICATION
     Route: 048
  12. DOXEPIN HCL [Concomitant]
     Indication: SLEEP DISORDER
     Route: 048
  13. GEMFIBROZIL [Concomitant]
     Indication: CARDIAC DISORDER
     Route: 048
  14. EXTRA STRENGTH TYLENOL [Concomitant]
     Route: 048
  15. ALENDRONATE SODIUM [Concomitant]
     Indication: OSTEOPOROSIS
     Route: 048
  16. MIRAPEX [Concomitant]
     Indication: PAIN
     Route: 048

REACTIONS (3)
  - PRODUCT QUALITY ISSUE [None]
  - PROTHROMBIN TIME PROLONGED [None]
  - WRONG TECHNIQUE IN DRUG USAGE PROCESS [None]
